FAERS Safety Report 21285075 (Version 2)
Quarter: 2022Q4

REPORT INFORMATION
  Report Type: Report from Study
  Country: US (occurrence: US)
  Receive Date: 20220902
  Receipt Date: 20221017
  Transmission Date: 20230112
  Serious: Yes (Hospitalization, Other)
  Sender: FDA-Public Use
  Company Number: US-GILEAD-2022-0593256

PATIENT
  Sex: Female

DRUGS (31)
  1. AZTREONAM LYSINE [Suspect]
     Active Substance: AZTREONAM LYSINE
     Indication: Cystic fibrosis lung
     Dosage: 75 MG, TID, 28/28 QOM
     Route: 055
  2. AZTREONAM LYSINE [Suspect]
     Active Substance: AZTREONAM LYSINE
     Indication: Cystic fibrosis
  3. TRIKAFTA [Concomitant]
     Active Substance: ELEXACAFTOR\IVACAFTOR\TEZACAFTOR
  4. BOTOX [Concomitant]
     Active Substance: ONABOTULINUMTOXINA
  5. HUMALOG [Concomitant]
     Active Substance: INSULIN LISPRO
  6. ELIQUIS [Concomitant]
     Active Substance: APIXABAN
  7. KLONOPIN [Concomitant]
     Active Substance: CLONAZEPAM
  8. CELLCEPT [Concomitant]
     Active Substance: MYCOPHENOLATE MOFETIL
  9. ACTIGALL [Concomitant]
     Active Substance: URSODIOL
  10. PREDNISONE [Concomitant]
     Active Substance: PREDNISONE
  11. LYRICA [Concomitant]
     Active Substance: PREGABALIN
  12. SERTRALINE [Concomitant]
     Active Substance: SERTRALINE HYDROCHLORIDE
  13. FLOVENT [Concomitant]
     Active Substance: FLUTICASONE PROPIONATE
  14. LEVOTHYROXINE [Concomitant]
     Active Substance: LEVOTHYROXINE
  15. ACYCLOVIR [Concomitant]
     Active Substance: ACYCLOVIR
  16. CYCLOBENZAPRINE [Concomitant]
     Active Substance: CYCLOBENZAPRINE
  17. VITAMIN E [Concomitant]
     Active Substance: .ALPHA.-TOCOPHEROL
  18. OMEPRAZOLE [Concomitant]
     Active Substance: OMEPRAZOLE
  19. MAGNESIUM [Concomitant]
     Active Substance: MAGNESIUM
  20. FAMOTIDINE [Concomitant]
     Active Substance: FAMOTIDINE
  21. PROBIOTIC COMPLEX [Concomitant]
  22. VITAMIN D NOS [Concomitant]
     Active Substance: VITAMIN D NOS
  23. ATENOLOL [Concomitant]
     Active Substance: ATENOLOL
  24. VITAMIN C [Concomitant]
     Active Substance: ASCORBIC ACID
  25. ZENPEP [Concomitant]
     Active Substance: PANCRELIPASE AMYLASE\PANCRELIPASE LIPASE\PANCRELIPASE PROTEASE
  26. ATIVAN [Concomitant]
     Active Substance: LORAZEPAM
  27. PROGRAF [Concomitant]
     Active Substance: TACROLIMUS
  28. MIRALAX [Concomitant]
     Active Substance: POLYETHYLENE GLYCOL 3350
  29. CALCIUM + D VOOST [Concomitant]
  30. BACTRIM [Concomitant]
     Active Substance: SULFAMETHOXAZOLE\TRIMETHOPRIM
  31. GOLYTELY [Concomitant]
     Active Substance: POLYETHYLENE GLYCOL 3350\POTASSIUM CHLORIDE\SODIUM BICARBONATE\SODIUM CHLORIDE\SODIUM SULFATE

REACTIONS (2)
  - Acute respiratory failure [Unknown]
  - Circumstance or information capable of leading to medication error [Unknown]
